FAERS Safety Report 9817620 (Version 1)
Quarter: 2013Q4

REPORT INFORMATION
  Report Type: Spontaneous
  Country: GB (occurrence: None)
  Receive Date: 20131223
  Receipt Date: 20131223
  Transmission Date: 20140711
  Serious: No
  Sender: FDA-Public Use
  Company Number: 220359

PATIENT
  Sex: Female

DRUGS (1)
  1. PICATO [Suspect]
     Indication: PRODUCT USED FOR UNKNOWN INDICATION

REACTIONS (7)
  - Application site reaction [None]
  - Malaise [None]
  - Malaise [None]
  - Depressed mood [None]
  - Application site erosion [None]
  - Application site erosion [None]
  - Incorrect drug administration duration [None]
